FAERS Safety Report 17472742 (Version 1)
Quarter: 2020Q1

REPORT INFORMATION
  Report Type: Spontaneous
  Country: US (occurrence: US)
  Receive Date: 20200227
  Receipt Date: 20200227
  Transmission Date: 20200409
  Serious: Yes (Disabling, Other)
  Sender: FDA-Public Use
  Company Number: None

PATIENT
  Age: 62 Year
  Weight: 105.75 kg

DRUGS (7)
  1. OTC TENS [Concomitant]
  2. NAPROXEN SODIUM. [Concomitant]
     Active Substance: NAPROXEN SODIUM
  3. MONTELUKAST SODIUM. [Suspect]
     Active Substance: MONTELUKAST SODIUM
     Indication: ASTHMA
     Dosage: ?          QUANTITY:1 TABLET(S);?
     Route: 048
     Dates: start: 20200216, end: 20200225
  4. ALBUTEROL SULFATE. [Concomitant]
     Active Substance: ALBUTEROL SULFATE
  5. ASPIRIN. [Concomitant]
     Active Substance: ASPIRIN
  6. KEPPRA [Concomitant]
     Active Substance: LEVETIRACETAM
  7. MULTIVITAMIN SUPPLEMENT [Concomitant]

REACTIONS (11)
  - Skin infection [None]
  - Anaemia [None]
  - Thirst [None]
  - Weight increased [None]
  - Headache [None]
  - Dyspnoea [None]
  - Fatigue [None]
  - Dizziness [None]
  - Insomnia [None]
  - Food aversion [None]
  - Hunger [None]

NARRATIVE: CASE EVENT DATE: 20200225
